FAERS Safety Report 8132859-9 (Version None)
Quarter: 2012Q1

REPORT INFORMATION
  Report Type: 
  Country: None (occurrence: None)
  Receive Date: 20120208
  Receipt Date: 20120130
  Transmission Date: 20120608
  Serious: Yes (Other)
  Sender: FDA-Public Use
  Company Number: OMPQ-NO-1202S-0152

PATIENT
  Age: 84 Year
  Sex: Male

DRUGS (1)
  1. OMNIPAGUE (IOHEXOL) [Suspect]
     Indication: INTESTINAL OBSTRUCTION
     Dosage: 120 ML, SINGLE DOSE, INTRAVENOUS
     Route: 042
     Dates: start: 20120114, end: 20120114

REACTIONS (2)
  - OEDEMA PERIPHERAL [None]
  - INJECTION SITE EXTRAVASATION [None]
